FAERS Safety Report 18144763 (Version 2)
Quarter: 2020Q3

REPORT INFORMATION
  Report Type: Report from Study
  Country: US (occurrence: US)
  Receive Date: 20200813
  Receipt Date: 20200818
  Transmission Date: 20201103
  Serious: No
  Sender: FDA-Public Use
  Company Number: NVSC2020US223371

PATIENT
  Sex: Female
  Weight: 61.23 kg

DRUGS (1)
  1. XIIDRA [Suspect]
     Active Substance: LIFITEGRAST
     Indication: PRODUCT USED FOR UNKNOWN INDICATION
     Dosage: 1 GTT, BID
     Route: 047

REACTIONS (5)
  - Weight decreased [Unknown]
  - Eye irritation [Unknown]
  - Vision blurred [Unknown]
  - Eating disorder [Unknown]
  - Taste disorder [Unknown]
